FAERS Safety Report 4362525-7 (Version None)
Quarter: 2004Q2

REPORT INFORMATION
  Report Type: 
  Country: None (occurrence: None)
  Receive Date: 20040517
  Receipt Date: 20040301
  Transmission Date: 20050107
  Serious: Yes (Other)
  Sender: FDA-Public Use
  Company Number: S04-USA-01060-01

PATIENT
  Age: 76 Year
  Sex: Male

DRUGS (8)
  1. NAMENDA [Suspect]
     Indication: DEMENTIA ALZHEIMER'S TYPE
     Dosage: 5 MG QD; PO
     Route: 048
     Dates: start: 20040204, end: 20040210
  2. NAMENDA [Suspect]
     Indication: DEMENTIA ALZHEIMER'S TYPE
     Dosage: 10 MG QD; PO
     Route: 048
     Dates: start: 20040211, end: 20040221
  3. LOPRESSOR [Concomitant]
  4. ARICEPT [Concomitant]
  5. LANOXIN [Concomitant]
  6. SYNTHROID [Concomitant]
  7. BENADRYL [Concomitant]
  8. ASPIRIN [Concomitant]

REACTIONS (3)
  - BALANCE DISORDER [None]
  - FACE INJURY [None]
  - FALL [None]
